FAERS Safety Report 25077743 (Version 1)
Quarter: 2025Q1

REPORT INFORMATION
  Report Type: Report from Study
  Country: CA (occurrence: CA)
  Receive Date: 20250314
  Receipt Date: 20250314
  Transmission Date: 20250408
  Serious: Yes (Death)
  Sender: JOHNSON AND JOHNSON
  Company Number: CA-JNJFOC-20250328303

PATIENT
  Age: 56 Year
  Sex: Male

DRUGS (1)
  1. SIMPONI [Suspect]
     Active Substance: GOLIMUMAB
     Indication: Rheumatoid arthritis
     Route: 058

REACTIONS (1)
  - Lung neoplasm malignant [Fatal]
